FAERS Safety Report 14776602 (Version 2)
Quarter: 2018Q2

REPORT INFORMATION
  Report Type: Spontaneous
  Country: JP (occurrence: JP)
  Receive Date: 20180418
  Receipt Date: 20180606
  Transmission Date: 20180711
  Serious: Yes (Other)
  Sender: FDA-Public Use
  Company Number: JP-BEH-2018089740

PATIENT
  Age: 1 Year
  Sex: Male

DRUGS (2)
  1. FLURBIPROFEN                       /00435302/ [Concomitant]
     Dosage: 4 MG/KG, QD
     Route: 048
  2. HUMAN IMMUNOGLOBULIN (NC) [Suspect]
     Active Substance: HUMAN IMMUNOGLOBULIN G
     Indication: KAWASAKI^S DISEASE
     Dosage: 2000 MG/KG, QD
     Route: 042

REACTIONS (8)
  - Pleural effusion [Recovered/Resolved]
  - Thrombocytopenia [Recovered/Resolved]
  - Fibrin D dimer increased [Recovered/Resolved]
  - Oxygen saturation decreased [Recovered/Resolved]
  - Disseminated intravascular coagulation [Recovered/Resolved]
  - Fibrin degradation products increased [Recovered/Resolved]
  - Blood fibrinogen decreased [Recovered/Resolved]
  - Dyspnoea [Recovered/Resolved]
